FAERS Safety Report 7593780-8 (Version None)
Quarter: 2011Q3

REPORT INFORMATION
  Report Type: 
  Country: None (occurrence: None)
  Receive Date: 20110706
  Receipt Date: 20110623
  Transmission Date: 20111222
  Serious: Yes (Other)
  Sender: FDA-Public Use
  Company Number: PHHY2011NL56492

PATIENT
  Sex: Female

DRUGS (2)
  1. ZOLEDRONIC ACID [Suspect]
     Dosage: 5 MG/100ML
     Route: 042
     Dates: start: 20100608
  2. ZOLEDRONIC ACID [Suspect]
     Dosage: 5 MG/100ML ONCE PER 364 DAYS
     Route: 042
     Dates: start: 20110620

REACTIONS (3)
  - RESPIRATORY TRACT INFECTION [None]
  - MALAISE [None]
  - DIZZINESS [None]
